FAERS Safety Report 9022521 (Version 1)
Quarter: 2013Q1

REPORT INFORMATION
  Report Type: Spontaneous
  Country: US (occurrence: US)
  Receive Date: 20130118
  Receipt Date: 20130118
  Transmission Date: 20140127
  Serious: No
  Sender: FDA-Public Use
  Company Number: US-GLAXOSMITHKLINE-A0919555A

PATIENT
  Age: 70 Year
  Sex: Male

DRUGS (4)
  1. PROMACTA [Suspect]
     Indication: IDIOPATHIC THROMBOCYTOPENIC PURPURA
     Dosage: 300MG PER DAY
     Route: 048
     Dates: start: 201008
  2. SYNTHROID [Concomitant]
  3. TOPROL [Concomitant]
  4. CELEBREX [Concomitant]

REACTIONS (9)
  - Fatigue [Not Recovered/Not Resolved]
  - Bone pain [Unknown]
  - Headache [Unknown]
  - Overdose [Unknown]
  - Laboratory test abnormal [Unknown]
  - Malaise [Unknown]
  - Asthenia [Unknown]
  - Somnolence [Unknown]
  - Insomnia [Unknown]
